FAERS Safety Report 6637911-2 (Version None)
Quarter: 2010Q1

REPORT INFORMATION
  Report Type: 
  Country: None (occurrence: None)
  Receive Date: 20100317
  Receipt Date: 20100305
  Transmission Date: 20100710
  Serious: Yes (Hospitalization, Other)
  Sender: FDA-Public Use
  Company Number: PHHY2010MX01805

PATIENT
  Age: 78 Year
  Sex: Female

DRUGS (6)
  1. DIOVAN [Suspect]
     Indication: HYPERTENSION
     Dosage: 320 MG, QD
     Route: 048
     Dates: start: 20061001, end: 20100106
  2. WARFARIN SODIUM [Concomitant]
  3. HEPARIN [Concomitant]
  4. SPIRONOLACTONE [Concomitant]
  5. GALVUS [Concomitant]
  6. BISOPROLOL FUMARATE AND HYDROCHLOROTHIAZIDE [Concomitant]

REACTIONS (12)
  - ANAEMIA [None]
  - BLOOD PRESSURE INCREASED [None]
  - BONE FISSURE [None]
  - BURNING SENSATION [None]
  - DECREASED APPETITE [None]
  - EMBOLISM [None]
  - FALL [None]
  - HYPOTENSION [None]
  - MOBILITY DECREASED [None]
  - PULMONARY THROMBOSIS [None]
  - THERMAL BURN [None]
  - THROMBOSIS [None]
